FAERS Safety Report 7690554-4 (Version None)
Quarter: 2011Q3

REPORT INFORMATION
  Report Type: 
  Country: None (occurrence: None)
  Receive Date: 20110817
  Receipt Date: 20110817
  Transmission Date: 20111222
  Serious: Yes (Hospitalization)
  Sender: FDA-Public Use
  Company Number: None

PATIENT
  Age: 84 Year
  Sex: Male
  Weight: 60.4 kg

DRUGS (2)
  1. WARFARIN SODIUM [Suspect]
     Indication: ATRIAL FIBRILLATION
     Dosage: 2.7 MG EVERY DAY PO
     Route: 048
     Dates: start: 20110701, end: 20110805
  2. WARFARIN SODIUM [Suspect]
     Indication: DEEP VEIN THROMBOSIS
     Dosage: 2.7 MG EVERY DAY PO
     Route: 048
     Dates: start: 20110701, end: 20110805

REACTIONS (2)
  - MELAENA [None]
  - HAEMATEMESIS [None]
